FAERS Safety Report 25629473 (Version 3)
Quarter: 2025Q3

REPORT INFORMATION
  Report Type: Spontaneous
  Country: CO (occurrence: CO)
  Receive Date: 20250731
  Receipt Date: 20250908
  Transmission Date: 20251021
  Serious: No
  Sender: PFIZER
  Company Number: CO-PFIZER INC-PV202500092067

PATIENT
  Sex: Female

DRUGS (1)
  1. GENOTROPIN [Suspect]
     Active Substance: SOMATROPIN
     Dosage: 1.6 MG, DAILY
     Route: 058

REACTIONS (4)
  - Device mechanical issue [Unknown]
  - Device use issue [Unknown]
  - Product communication issue [Unknown]
  - Drug dose omission by device [Unknown]
